FAERS Safety Report 6607893-8 (Version None)
Quarter: 2010Q1

REPORT INFORMATION
  Report Type: 
  Country: None (occurrence: None)
  Receive Date: 20100222
  Receipt Date: 20100211
  Transmission Date: 20100710
  Serious: Yes (Hospitalization)
  Sender: FDA-Public Use
  Company Number: 2007US002389

PATIENT
  Age: 3 Year
  Sex: Male
  Weight: 14 kg

DRUGS (13)
  1. PROGRAF [Suspect]
     Indication: RENAL TRANSPLANT
     Dosage: 1.4 MG, BID 2 MG, BID, ORAL
     Dates: start: 20060623
  2. DACLIZUMAB (DACLIZUMAB) [Suspect]
     Indication: RENAL TRANSPLANT
     Dosage: 20 MG, /D, IV NOS ; 20 MG, /D, IV NOS ; 12 MG, /D, IV NOS ; 11 MG, /D, IV NOS ; 12 MG, /D, IV NOS
     Route: 042
     Dates: start: 20060623, end: 20060626
  3. DACLIZUMAB (DACLIZUMAB) [Suspect]
     Indication: RENAL TRANSPLANT
     Dosage: 20 MG, /D, IV NOS ; 20 MG, /D, IV NOS ; 12 MG, /D, IV NOS ; 11 MG, /D, IV NOS ; 12 MG, /D, IV NOS
     Route: 042
     Dates: start: 20060706, end: 20060706
  4. DACLIZUMAB (DACLIZUMAB) [Suspect]
     Indication: RENAL TRANSPLANT
     Dosage: 20 MG, /D, IV NOS ; 20 MG, /D, IV NOS ; 12 MG, /D, IV NOS ; 11 MG, /D, IV NOS ; 12 MG, /D, IV NOS
     Route: 042
     Dates: start: 20060721, end: 20060721
  5. DACLIZUMAB (DACLIZUMAB) [Suspect]
     Indication: RENAL TRANSPLANT
     Dosage: 20 MG, /D, IV NOS ; 20 MG, /D, IV NOS ; 12 MG, /D, IV NOS ; 11 MG, /D, IV NOS ; 12 MG, /D, IV NOS
     Route: 042
     Dates: start: 20060804, end: 20060804
  6. DACLIZUMAB (DACLIZUMAB) [Suspect]
     Indication: RENAL TRANSPLANT
     Dosage: 20 MG, /D, IV NOS ; 20 MG, /D, IV NOS ; 12 MG, /D, IV NOS ; 11 MG, /D, IV NOS ; 12 MG, /D, IV NOS
     Route: 042
     Dates: start: 20060818, end: 20060818
  7. CALCIUM CARBONATE [Concomitant]
  8. FERROUS SULFATE TAB [Concomitant]
  9. PREVACID [Concomitant]
  10. CELLCEPT [Concomitant]
  11. BACTRIM [Concomitant]
  12. ACETAMINOPHEN [Concomitant]
  13. ZOFRAN [Concomitant]

REACTIONS (5)
  - DRUG LEVEL DECREASED [None]
  - HEART RATE INCREASED [None]
  - KIDNEY TRANSPLANT REJECTION [None]
  - RESPIRATORY RATE INCREASED [None]
  - WOUND SECRETION [None]
